FAERS Safety Report 6233252-6 (Version None)
Quarter: 2009Q2

REPORT INFORMATION
  Report Type: 
  Country: None (occurrence: None)
  Receive Date: 20090617
  Receipt Date: 20090608
  Transmission Date: 20091009
  Serious: Yes (Hospitalization)
  Sender: FDA-Public Use
  Company Number: US-WATSON-2009-04292

PATIENT
  Sex: Male
  Weight: 108.8 kg

DRUGS (13)
  1. PROPAFENONE (WATSON LABORATORIES) [Suspect]
     Indication: ATRIAL FIBRILLATION
     Dosage: 225 MG, BID
     Route: 048
     Dates: start: 20090201, end: 20090301
  2. PROPAFENONE (WATSON LABORATORIES) [Suspect]
     Dosage: 225 MG, BID
     Route: 048
     Dates: start: 20081110
  3. WARFARIN SODIUM [Concomitant]
     Indication: ARRHYTHMIA
     Dosage: UNK
     Route: 048
     Dates: start: 20081101
  4. VITAMIN E                          /00110501/ [Concomitant]
     Indication: DRUG USE FOR UNKNOWN INDICATION
     Dosage: UNK
     Route: 065
  5. SELENIUM [Concomitant]
     Indication: DRUG USE FOR UNKNOWN INDICATION
     Dosage: UNK
     Route: 065
  6. SAW PALMETTO                       /00833501/ [Concomitant]
     Indication: DRUG USE FOR UNKNOWN INDICATION
     Dosage: UNK
     Route: 065
  7. PROTONIX                           /01263201/ [Concomitant]
     Indication: DRUG USE FOR UNKNOWN INDICATION
     Dosage: UNK
     Route: 065
  8. LISINOPRIL [Concomitant]
     Indication: DRUG USE FOR UNKNOWN INDICATION
     Dosage: 1 TABLET QAM
     Route: 048
     Dates: start: 20081101
  9. FLONASE [Concomitant]
     Indication: DRUG USE FOR UNKNOWN INDICATION
     Dosage: UNK
     Route: 045
  10. ZIAC                               /01166101/ [Concomitant]
     Indication: BLOOD PRESSURE
     Dosage: UNK
     Route: 048
  11. ASPIRIN [Concomitant]
     Indication: DRUG USE FOR UNKNOWN INDICATION
     Dosage: 325 MG, DAILY
     Route: 048
  12. SIMCOR [Concomitant]
     Indication: HYPERTRIGLYCERIDAEMIA
     Dosage: 500 MG, UNKNOWN
     Route: 048
     Dates: start: 20090101
  13. SIMCOR [Concomitant]
     Indication: HYPERCHOLESTEROLAEMIA

REACTIONS (5)
  - ATRIAL FIBRILLATION [None]
  - BLOOD PRESSURE FLUCTUATION [None]
  - DRUG INEFFECTIVE [None]
  - GAIT DISTURBANCE [None]
  - HEART RATE IRREGULAR [None]
